FAERS Safety Report 9210546 (Version 1)
Quarter: 2013Q2

REPORT INFORMATION
  Report Type: Spontaneous
  Country: US (occurrence: US)
  Receive Date: 20130404
  Receipt Date: 20130404
  Transmission Date: 20140414
  Serious: Yes (Other)
  Sender: FDA-Public Use
  Company Number: US-PFIZER INC-2013103013

PATIENT
  Age: 49 Year
  Sex: Female

DRUGS (4)
  1. PRAVASTATIN SODIUM [Suspect]
     Dosage: UNK
  2. GABAPENTIN [Suspect]
     Indication: POLYNEUROPATHY
     Dosage: UNK
  3. LENALIDOMIDE [Suspect]
     Indication: PLASMA CELL MYELOMA
     Dosage: 5 MG, 1X/DAY
     Dates: start: 201109
  4. LENALIDOMIDE [Suspect]
     Dosage: 10 MG, 1X/DAY

REACTIONS (2)
  - Rhabdomyolysis [Recovering/Resolving]
  - Blood creatinine increased [Recovered/Resolved]
